FAERS Safety Report 12897486 (Version 2)
Quarter: 2016Q4

REPORT INFORMATION
  Report Type: Report from Study
  Country: ES (occurrence: ES)
  Receive Date: 20161031
  Receipt Date: 20161031
  Transmission Date: 20170207
  Serious: Yes (Death)
  Sender: FDA-Public Use
  Company Number: ES-BAYER-2016-205170

PATIENT
  Sex: Female

DRUGS (4)
  1. ASPIRIN. [Interacting]
     Active Substance: ASPIRIN
     Indication: ATRIAL FIBRILLATION
  2. CLOPIDOGREL [Interacting]
     Active Substance: CLOPIDOGREL BISULFATE
     Indication: ATRIAL FIBRILLATION
  3. ASPIRIN. [Suspect]
     Active Substance: ASPIRIN
     Indication: PERCUTANEOUS CORONARY INTERVENTION
  4. CLOPIDOGREL [Interacting]
     Active Substance: CLOPIDOGREL BISULFATE
     Indication: PERCUTANEOUS CORONARY INTERVENTION

REACTIONS (3)
  - Drug administration error [Fatal]
  - Haemorrhage intracranial [Fatal]
  - Labelled drug-drug interaction medication error [Fatal]
